FAERS Safety Report 15306162 (Version 1)
Quarter: 2018Q3

REPORT INFORMATION
  Report Type: Spontaneous
  Country: US (occurrence: US)
  Receive Date: 20180810
  Receipt Date: 20180810
  Transmission Date: 20181010
  Serious: Yes (Hospitalization)
  Sender: FDA-Public Use
  Company Number: None

PATIENT
  Sex: Female

DRUGS (8)
  1. GABAPENTIN. [Concomitant]
     Active Substance: GABAPENTIN
  2. FENTANYL. [Concomitant]
     Active Substance: FENTANYL
  3. CAPECITABINE. [Suspect]
     Active Substance: CAPECITABINE
     Indication: BREAST CANCER FEMALE
     Dosage: 1000 MG ORAL BID, ON 7, OFF 7
     Route: 048
     Dates: start: 20180501
  4. PREDNISONE. [Concomitant]
     Active Substance: PREDNISONE
  5. IMODIUM A?D [Concomitant]
     Active Substance: LOPERAMIDE HYDROCHLORIDE
  6. NERLYNX [Concomitant]
     Active Substance: NERATINIB
  7. ZOFRAN [Concomitant]
     Active Substance: ONDANSETRON HYDROCHLORIDE
  8. HYDROMO/NACL [Concomitant]

REACTIONS (1)
  - Hospitalisation [None]
